FAERS Safety Report 7304953-3 (Version None)
Quarter: 2011Q1

REPORT INFORMATION
  Report Type: 
  Country: None (occurrence: None)
  Receive Date: 20110222
  Receipt Date: 20110214
  Transmission Date: 20110831
  Serious: Yes (Hospitalization)
  Sender: FDA-Public Use
  Company Number: US-US-EMD SERONO, INC.-7040668

PATIENT
  Sex: Female

DRUGS (1)
  1. REBIF [Suspect]
     Indication: PRODUCT USED FOR UNKNOWN INDICATION
     Route: 058
     Dates: start: 20110131, end: 20110131

REACTIONS (4)
  - BLOOD PRESSURE ABNORMAL [None]
  - MUSCLE TIGHTNESS [None]
  - HYPOAESTHESIA [None]
  - SENSATION OF HEAVINESS [None]
